FAERS Safety Report 7414473-3 (Version None)
Quarter: 2011Q2

REPORT INFORMATION
  Report Type: 
  Country: None (occurrence: None)
  Receive Date: 20110414
  Receipt Date: 20110404
  Transmission Date: 20111010
  Serious: No
  Sender: FDA-Public Use
  Company Number: US-JNJFOC-20110301300

PATIENT
  Sex: Female

DRUGS (1)
  1. DURAGESIC [Suspect]
     Indication: POST POLIO SYNDROME
     Route: 062

REACTIONS (4)
  - DRUG DOSE OMISSION [None]
  - PAIN [None]
  - MUSCLE SPASMS [None]
  - DIARRHOEA [None]
